FAERS Safety Report 11319534 (Version 1)
Quarter: 2015Q3

REPORT INFORMATION
  Report Type: Spontaneous
  Country: US (occurrence: None)
  Receive Date: 20150727
  Receipt Date: 20150727
  Transmission Date: 20151125
  Serious: Yes (Disabling, Other)
  Sender: FDA-Public Use
  Company Number: None

PATIENT
  Age: 47 Year
  Sex: Female
  Weight: 79.83 kg

DRUGS (2)
  1. CONTRAVE [Suspect]
     Active Substance: BUPROPION HYDROCHLORIDE\NALTREXONE HYDROCHLORIDE
     Indication: WEIGHT DECREASED
     Dosage: TAKEN BY MOUTH
     Dates: start: 20150713
  2. METOPROLOL [Concomitant]
     Active Substance: METOPROLOL

REACTIONS (3)
  - Anxiety [None]
  - Panic attack [None]
  - Nausea [None]

NARRATIVE: CASE EVENT DATE: 20150713
